FAERS Safety Report 7878384-1 (Version None)
Quarter: 2011Q4

REPORT INFORMATION
  Report Type: 
  Country: None (occurrence: None)
  Receive Date: 20111003
  Receipt Date: 20110629
  Transmission Date: 20120403
  Serious: Yes (Other)
  Sender: FDA-Public Use
  Company Number: 288551USA

PATIENT
  Age: 42 Year
  Sex: Female
  Weight: 99.0202 kg

DRUGS (4)
  1. METFORMIN HCL [Suspect]
     Indication: DIABETES MELLITUS
     Dosage: (1000 MG)
  2. INSULIN GLARGINE [Suspect]
     Indication: DIABETES MELLITUS
     Dosage: (70 IU)
  3. GLYBURIDE [Suspect]
     Indication: DIABETES MELLITUS
     Dosage: (10 MG)
  4. INSULIN LISPRO [Suspect]
     Indication: DIABETES MELLITUS
     Dates: start: 20110601

REACTIONS (2)
  - BLOOD GLUCOSE INCREASED [None]
  - DRUG INEFFECTIVE [None]
